FAERS Safety Report 17347629 (Version 1)
Quarter: 2020Q1

REPORT INFORMATION
  Report Type: Spontaneous
  Country: US (occurrence: US)
  Receive Date: 20200115
  Receipt Date: 20200115
  Transmission Date: 20200409
  Serious: Yes (Other)
  Sender: FDA-Public Use
  Company Number: None

PATIENT
  Age: 73 Year
  Sex: Male
  Weight: 88.3 kg

DRUGS (2)
  1. TGR-1202 (UMBRALIAIB), 600MG PO DAILY [Suspect]
     Active Substance: UMBRALISIB
     Indication: MYELOFIBROSIS
     Route: 048
     Dates: start: 20171106
  2. RUXOLITINIB 10.5MG BID PO [Suspect]
     Active Substance: RUXOLITINIB
     Indication: MYELOFIBROSIS
     Route: 048
     Dates: start: 20171106

REACTIONS (1)
  - Neuroendocrine carcinoma of the skin [None]

NARRATIVE: CASE EVENT DATE: 20191127
